FAERS Safety Report 6910604-X (Version None)
Quarter: 2010Q3

REPORT INFORMATION
  Report Type: 
  Country: None (occurrence: None)
  Receive Date: 20100806
  Receipt Date: 20100729
  Transmission Date: 20110219
  Serious: Yes (Hospitalization)
  Sender: FDA-Public Use
  Company Number: JP-ROCHE-714428

PATIENT
  Sex: Female
  Weight: 40.9 kg

DRUGS (14)
  1. TOCILIZUMAB [Suspect]
     Indication: PANCREATIC CARCINOMA NON-RESECTABLE
     Route: 042
     Dates: start: 20100319
  2. GEMZAR [Suspect]
     Indication: PANCREATIC CARCINOMA NON-RESECTABLE
     Route: 065
     Dates: start: 20100318
  3. LANSOPRAZOLE [Concomitant]
     Route: 048
     Dates: start: 20100310
  4. MAGMITT [Concomitant]
     Route: 048
     Dates: start: 20100310
  5. TENORMIN [Concomitant]
     Dosage: NOTE: BEGINNING OF DOSAGE DAY: 2010/3/4 FORMER
     Route: 048
  6. OXYCONTIN [Concomitant]
     Route: 048
     Dates: start: 20100310, end: 20100318
  7. OXYCONTIN [Concomitant]
     Route: 048
     Dates: start: 20100319
  8. NAUZELIN [Concomitant]
     Route: 048
     Dates: start: 20100323, end: 20100726
  9. OXINORM [Concomitant]
     Dosage: DOSE FORM: POWDERED MEDICINE, NOTE: SINGLE USE
     Route: 048
     Dates: start: 20100314
  10. MYTEAR [Concomitant]
     Dosage: NOTE: PROPER BEGINNING OF DOSAGE DAY: 2010/3/4 FORMER,  DOSE FORM: EYE DROP
     Route: 047
  11. KARY UNI [Concomitant]
     Dosage: NOTE: PROPER BEGINNING OF DOSAGE DAY: 2010/3/4 FORMER DOSE FORM: EYE DROP.
     Route: 047
  12. FELBINAC [Concomitant]
     Dosage: DRUG: SELTOUCH, NOTE: PROPERLY DOSE FORM: TAPE
     Route: 062
     Dates: start: 20100618
  13. TAKA-DIASTASE [Concomitant]
     Dosage: DRUG: SM(TAKA-DIASTASE_NATURAL AGENTS COMBINED DRUG). DOSE FORM: POWDERED MEDICINE
     Route: 048
     Dates: start: 20100630
  14. GRANISETRON HYDROCHLORIDE [Concomitant]
     Dosage: NOTE: ADMINISTERING WHEN GEMCITABINE IS ADMINISTERED.
     Route: 065
     Dates: start: 20100318

REACTIONS (1)
  - DECREASED APPETITE [None]
